FAERS Safety Report 5901987-8 (Version None)
Quarter: 2008Q3

REPORT INFORMATION
  Report Type: 
  Country: None (occurrence: None)
  Receive Date: 20080925
  Receipt Date: 20080910
  Transmission Date: 20090109
  Serious: Yes (Life-Threatening)
  Sender: FDA-Public Use
  Company Number: 2008S1000338

PATIENT
  Age: 56 Year
  Sex: Male

DRUGS (1)
  1. CUBICIN [Suspect]
     Dosage: 4 MG/KG; Q24H; IV
     Route: 042

REACTIONS (1)
  - VENTRICULAR TACHYCARDIA [None]
